FAERS Safety Report 5424888-0 (Version None)
Quarter: 2007Q3

REPORT INFORMATION
  Report Type: 
  Country: None (occurrence: None)
  Receive Date: 20070824
  Receipt Date: 20070815
  Transmission Date: 20080115
  Serious: Yes (Hospitalization)
  Sender: FDA-Public Use
  Company Number: CH-AVENTIS-200717444GDDC

PATIENT
  Age: 40 Year
  Sex: Female
  Weight: 77.4 kg

DRUGS (2)
  1. TAXOTERE [Suspect]
     Route: 042
     Dates: start: 20060809, end: 20060809
  2. TYLENOL W/ CODEINE [Concomitant]

REACTIONS (2)
  - AGRANULOCYTOSIS [None]
  - MONARTHRITIS [None]
